FAERS Safety Report 12775409 (Version 4)
Quarter: 2020Q3

REPORT INFORMATION
  Report Type: Report from Study
  Country: CA (occurrence: CA)
  Receive Date: 20160923
  Receipt Date: 20170125
  Transmission Date: 20201104
  Serious: Yes (Death)
  Sender: FDA-Public Use
  Company Number: CA-PFIZER INC-2016440371

PATIENT
  Age: 74 Year
  Sex: Female

DRUGS (6)
  1. TREMELIMUMAB. [Suspect]
     Active Substance: TREMELIMUMAB
     Indication: SMALL CELL LUNG CANCER
     Dosage: 268 MG (21 DAY CYCLE)
     Route: 042
     Dates: start: 20160802, end: 20160803
  2. ACETAMINOPHEN. [Concomitant]
     Active Substance: ACETAMINOPHEN
     Dates: start: 20160814
  3. PREDNISONE. [Concomitant]
     Active Substance: PREDNISONE
     Dates: start: 20160830
  4. CARBOPLATIN. [Suspect]
     Active Substance: CARBOPLATIN
     Indication: SMALL CELL LUNG CANCER
     Dosage: (AUC 5, DAY 1), 540 AUC (21 DAY CYCLE)
     Route: 042
     Dates: start: 20160802, end: 20160803
  5. MEDI4736 [Suspect]
     Active Substance: DURVALUMAB
     Indication: SMALL CELL LUNG CANCER
     Dosage: 1335 MG  (21 DAY CYCLE)
     Route: 042
     Dates: start: 20160802, end: 20160803
  6. ETOPOSIDE. [Suspect]
     Active Substance: ETOPOSIDE
     Indication: SMALL CELL LUNG CANCER
     Dosage: 200 MG (21 DAY CYCLE)
     Route: 042
     Dates: start: 20160802, end: 20160805

REACTIONS (1)
  - Myocarditis [Fatal]

NARRATIVE: CASE EVENT DATE: 20160909
